FAERS Safety Report 9715291 (Version 2)
Quarter: 2013Q4

REPORT INFORMATION
  Report Type: Report from Study
  Country: US (occurrence: US)
  Receive Date: 20131127
  Receipt Date: 20131206
  Transmission Date: 20140711
  Serious: Yes (Death, Hospitalization)
  Sender: FDA-Public Use
  Company Number: US-ABBVIE-13P-163-1173293-00

PATIENT
  Age: 48 Year
  Sex: Male
  Weight: 115.77 kg

DRUGS (11)
  1. HUMIRA [Suspect]
     Indication: RHEUMATOID ARTHRITIS
     Dates: start: 20130911, end: 20130925
  2. INSULIN [Concomitant]
     Indication: DIABETES MELLITUS
  3. PREDNISONE [Concomitant]
     Indication: RHEUMATOID ARTHRITIS
  4. SYNTHROID [Concomitant]
     Indication: HYPOTHYROIDISM
  5. VITAMIN D [Concomitant]
     Indication: PRODUCT USED FOR UNKNOWN INDICATION
  6. FLEXERIL [Concomitant]
     Indication: INTERVERTEBRAL DISC DEGENERATION
  7. FLEXERIL [Concomitant]
     Indication: RHEUMATOID ARTHRITIS
  8. PERCOCET [Concomitant]
     Indication: RHEUMATOID ARTHRITIS
  9. TL GARD RX [Concomitant]
     Indication: VITAMIN SUPPLEMENTATION
  10. PROTONIX [Concomitant]
     Indication: DYSPEPSIA
  11. XANAX [Concomitant]
     Indication: ANXIETY

REACTIONS (13)
  - Arrhythmia [Fatal]
  - Coronary artery disease [Fatal]
  - Hyperglycaemia [Recovered/Resolved]
  - Vomiting [Recovered/Resolved]
  - Chest pain [Recovered/Resolved]
  - Nausea [Recovered/Resolved]
  - Asthenia [Unknown]
  - Asthenia [Unknown]
  - Pain [Not Recovered/Not Resolved]
  - Cough [Not Recovered/Not Resolved]
  - Viral infection [Unknown]
  - Glycosylated haemoglobin increased [Unknown]
  - White blood cell count increased [Unknown]
